FAERS Safety Report 13635207 (Version 1)
Quarter: 2017Q2

REPORT INFORMATION
  Report Type: Spontaneous
  Country: US (occurrence: US)
  Receive Date: 20170608
  Receipt Date: 20170608
  Transmission Date: 20170830
  Serious: Yes (Other)
  Sender: FDA-Public Use
  Company Number: None

PATIENT
  Age: 34 Year
  Sex: Male
  Weight: 89.55 kg

DRUGS (2)
  1. OXAYDO [Suspect]
     Active Substance: OXYCODONE HYDROCHLORIDE
     Indication: PAIN
     Dosage: ?          QUANTITY:90 TABLET(S);?
     Route: 048
     Dates: start: 20170605, end: 20170607
  2. NAPROXON [Concomitant]
     Active Substance: NAPROXEN

REACTIONS (1)
  - Malaise [None]

NARRATIVE: CASE EVENT DATE: 20170605
